FAERS Safety Report 14160939 (Version 1)
Quarter: 2017Q4

REPORT INFORMATION
  Report Type: Report from Study
  Country: US (occurrence: US)
  Receive Date: 20171106
  Receipt Date: 20171106
  Transmission Date: 20180321
  Serious: Yes (Disabling)
  Sender: FDA-Public Use
  Company Number: US-SHIRE-US201721843

PATIENT
  Sex: Male

DRUGS (1)
  1. GATTEX [Suspect]
     Active Substance: TEDUGLUTIDE\WATER
     Indication: PRODUCT USED FOR UNKNOWN INDICATION
     Dosage: (0.35 ML) 2.5 MG, 1X/DAY:QD
     Route: 058
     Dates: start: 20170615

REACTIONS (3)
  - Abdominal pain [Recovering/Resolving]
  - Liver function test increased [Recovering/Resolving]
  - Cholelithiasis [Unknown]
